FAERS Safety Report 9968234 (Version 1)
Quarter: 2014Q1

REPORT INFORMATION
  Report Type: Report from Study
  Country: US (occurrence: US)
  Receive Date: 20140306
  Receipt Date: 20140306
  Transmission Date: 20141002
  Serious: No
  Sender: FDA-Public Use
  Company Number: US-ABBVIE-13P-163-1145622-00

PATIENT
  Age: 35 Year
  Sex: Female

DRUGS (2)
  1. HUMIRA [Suspect]
     Indication: CROHN^S DISEASE
     Dates: start: 20130825
  2. HUMIRA [Suspect]
     Dates: start: 20130909

REACTIONS (2)
  - Medication error [Not Recovered/Not Resolved]
  - Drug administration error [Not Recovered/Not Resolved]
